FAERS Safety Report 18534464 (Version 2)
Quarter: 2020Q4

REPORT INFORMATION
  Report Type: Spontaneous
  Country: US (occurrence: US)
  Receive Date: 20201123
  Receipt Date: 20201124
  Transmission Date: 20210114
  Serious: Yes (Other)
  Sender: FDA-Public Use
  Company Number: US-JNJFOC-20201132359

PATIENT
  Age: 49 Year
  Sex: Male

DRUGS (1)
  1. PARACETAMOL [Suspect]
     Active Substance: ACETAMINOPHEN
     Indication: COLITIS ISCHAEMIC
     Route: 065

REACTIONS (4)
  - Drug level increased [Unknown]
  - Hepatorenal failure [Unknown]
  - Product use in unapproved indication [Unknown]
  - False positive investigation result [Unknown]
